FAERS Safety Report 13431371 (Version 2)
Quarter: 2017Q3

REPORT INFORMATION
  Report Type: Spontaneous
  Country: IE (occurrence: IE)
  Receive Date: 20170412
  Receipt Date: 20170823
  Transmission Date: 20171127
  Serious: Yes (Hospitalization)
  Sender: FDA-Public Use
  Company Number: IE-FERRINGPH-2017FE01670

PATIENT

DRUGS (4)
  1. GONAL-F [Suspect]
     Active Substance: FOLLITROPIN
     Indication: INFERTILITY
     Dosage: 150 IU, UNK
     Route: 058
     Dates: start: 20170222, end: 20170305
  2. PREGNYL [Concomitant]
     Active Substance: CHORIOGONADOTROPIN ALFA
     Indication: PRODUCT USED FOR UNKNOWN INDICATION
     Dosage: 10000 IU, UNK
     Route: 058
     Dates: start: 20170313, end: 20170313
  3. MENOPUR [Suspect]
     Active Substance: FOLLITROPIN\LUTEINIZING HORMONE
     Indication: INFERTILITY
     Dosage: 300 IU, UNK
     Route: 058
     Dates: start: 20170222, end: 20170305
  4. SUPRECUR [Concomitant]
     Active Substance: BUSERELIN
     Indication: PRODUCT USED FOR UNKNOWN INDICATION
     Dosage: 0.5 ML, UNK
     Route: 058
     Dates: start: 20170221, end: 20170313

REACTIONS (8)
  - Renal impairment [Recovered/Resolved]
  - Pleural effusion [Recovered/Resolved]
  - Blood sodium decreased [Recovered/Resolved]
  - Abdominal distension [Recovered/Resolved]
  - Abdominal discomfort [Recovered/Resolved]
  - Therapeutic response increased [Recovered/Resolved]
  - Malaise [Recovered/Resolved]
  - Ovarian hyperstimulation syndrome [Recovered/Resolved]

NARRATIVE: CASE EVENT DATE: 20170306
